FAERS Safety Report 6371699-8 (Version None)
Quarter: 2009Q3

REPORT INFORMATION
  Report Type: 
  Country: None (occurrence: None)
  Receive Date: 20090923
  Receipt Date: 20081009
  Transmission Date: 20100115
  Serious: Yes (Other)
  Sender: FDA-Public Use
  Company Number: US-ASTRAZENECA-2008UW08744

PATIENT
  Age: 31 Year
  Sex: Female
  Weight: 94.3 kg

DRUGS (7)
  1. SEROQUEL [Suspect]
     Indication: SCHIZOPHRENIA
     Dosage: 50 TO 300 MG
     Route: 048
     Dates: start: 20010101
  2. SEROQUEL [Suspect]
     Indication: DISSOCIATIVE IDENTITY DISORDER
     Dosage: 50 TO 300 MG
     Route: 048
     Dates: start: 20010101
  3. CLOZARIL [Concomitant]
  4. HALDOL [Concomitant]
  5. RISPERDAL [Concomitant]
  6. XANAX [Concomitant]
  7. LEXAPRO [Concomitant]

REACTIONS (4)
  - HYPERGLYCAEMIA [None]
  - PANCREATITIS [None]
  - TARDIVE DYSKINESIA [None]
  - WEIGHT INCREASED [None]
